FAERS Safety Report 18898421 (Version 1)
Quarter: 2021Q1

REPORT INFORMATION
  Report Type: Other
  Country: US (occurrence: US)
  Receive Date: 20210216
  Receipt Date: 20210216
  Transmission Date: 20210420
  Serious: Yes (Hospitalization, Other)
  Sender: FDA-Public Use
  Company Number: US-ROCHE-2769557

PATIENT
  Age: 38 Year
  Sex: Male
  Weight: 78.09 kg

DRUGS (5)
  1. COTELLIC [Suspect]
     Active Substance: COBIMETINIB
     Indication: METASTATIC MALIGNANT MELANOMA
     Dosage: ONGOING:NO
     Route: 048
     Dates: start: 20210124
  2. ZELBORAF [Suspect]
     Active Substance: VEMURAFENIB
     Indication: METASTATIC MALIGNANT MELANOMA
     Dosage: ONGOING:NO
     Route: 048
     Dates: start: 20210124
  3. PEPCID [Concomitant]
     Active Substance: FAMOTIDINE
     Indication: GASTROOESOPHAGEAL REFLUX DISEASE
     Route: 048
  4. CARAFATE [Concomitant]
     Active Substance: SUCRALFATE
     Indication: GASTROOESOPHAGEAL REFLUX DISEASE
     Dosage: BEFORE MEALS AND AT BEDTIME ;ONGOING: YES
     Route: 048
  5. MELATONIN [Concomitant]
     Active Substance: MELATONIN
     Dosage: AT BEDTIME ;ONGOING: YES
     Route: 048
     Dates: start: 2021

REACTIONS (5)
  - Confusional state [Recovered/Resolved]
  - Cognitive disorder [Recovered/Resolved]
  - Retinal injury [Not Recovered/Not Resolved]
  - Blood sodium decreased [Recovered/Resolved]
  - Dizziness [Recovered/Resolved]

NARRATIVE: CASE EVENT DATE: 20210128
